FAERS Safety Report 9232892 (Version 2)
Quarter: 2013Q2

REPORT INFORMATION
  Report Type: Spontaneous
  Country: US (occurrence: None)
  Receive Date: 20121031
  Receipt Date: 20130107
  Transmission Date: 20140414
  Serious: Yes (Hospitalization, Other)
  Sender: FDA-Public Use
  Company Number: PHEH2012US015562

PATIENT
  Age: 48 Year
  Sex: Female
  Weight: 64.5 kg

DRUGS (2)
  1. GILENYA [Suspect]
     Indication: MULTIPLE SCLEROSIS
     Route: 048
     Dates: start: 20120808, end: 20120808
  2. ROPINIROLE (ROPINIROLE) [Concomitant]

REACTIONS (7)
  - Chest pain [None]
  - Dyspnoea [None]
  - Chest discomfort [None]
  - Atrioventricular block second degree [None]
  - Feeling abnormal [None]
  - Heart rate decreased [None]
  - Heart rate irregular [None]
